FAERS Safety Report 13052882 (Version 1)
Quarter: 2016Q4

REPORT INFORMATION
  Report Type: Other
  Country: FR (occurrence: FR)
  Receive Date: 20161221
  Receipt Date: 20161221
  Transmission Date: 20170207
  Serious: Yes (Death, Hospitalization)
  Sender: FDA-Public Use
  Company Number: FR-JUBILANT GENERICS LIMITED-1061149

PATIENT
  Age: 34 Year
  Sex: Male

DRUGS (5)
  1. QUETIAPINE FUMARATE. [Suspect]
     Active Substance: QUETIAPINE FUMARATE
  2. LOXAPINE. [Suspect]
     Active Substance: LOXAPINE
  3. DIAZEPAM. [Concomitant]
     Active Substance: DIAZEPAM
  4. TROPATEPINE [Suspect]
     Active Substance: TROPATEPINE
  5. VALPROIC ACID. [Concomitant]
     Active Substance: VALPROIC ACID

REACTIONS (9)
  - Intestinal ischaemia [Fatal]
  - Cardiac arrest [Fatal]
  - Metabolic acidosis [Fatal]
  - Mesenteric vascular occlusion [Fatal]
  - Small intestinal perforation [Fatal]
  - Sepsis [Fatal]
  - Colitis ischaemic [Fatal]
  - Haemorrhagic disorder [Fatal]
  - Multiple organ dysfunction syndrome [Fatal]

NARRATIVE: CASE EVENT DATE: 20161205
